FAERS Safety Report 10013468 (Version 1)
Quarter: 2014Q1

REPORT INFORMATION
  Report Type: Report from Study
  Country: CA (occurrence: CA)
  Receive Date: 20140314
  Receipt Date: 20140314
  Transmission Date: 20141002
  Serious: Yes (Death, Hospitalization)
  Sender: FDA-Public Use
  Company Number: CA-B.I. PHARMACEUTICALS,INC./RIDGEFIELD-2014-BI-10894CN

PATIENT
  Sex: Female

DRUGS (4)
  1. CLONIDINE [Suspect]
     Indication: PAIN
     Dosage: 150 MCG
     Route: 037
     Dates: start: 20131213
  2. MORPHINE [Concomitant]
     Indication: PAIN
     Route: 037
     Dates: start: 20131213
  3. BUPIVACAINE [Concomitant]
     Route: 037
     Dates: start: 20131213
  4. PALLIATVE TREATMENT [Concomitant]
     Indication: LUNG CANCER METASTATIC
     Route: 065

REACTIONS (2)
  - Pulmonary embolism [Fatal]
  - Respiratory failure [Fatal]
